FAERS Safety Report 5680848-6 (Version None)
Quarter: 2008Q1

REPORT INFORMATION
  Report Type: 
  Country: None (occurrence: None)
  Receive Date: 20080326
  Receipt Date: 20080314
  Transmission Date: 20080703
  Serious: Yes (Hospitalization, Other)
  Sender: FDA-Public Use
  Company Number: AR-PFIZER INC-2008015239

PATIENT
  Age: 35 Year
  Sex: Female
  Weight: 57 kg

DRUGS (4)
  1. ZELDOX (CAPSULES) [Suspect]
     Indication: BIPOLAR DISORDER
     Route: 048
  2. RIVOTRIL [Suspect]
     Route: 048
  3. T4 [Suspect]
     Route: 048
  4. TEGRETOL [Concomitant]
     Route: 048

REACTIONS (4)
  - AFFECT LABILITY [None]
  - RASH [None]
  - SUICIDE ATTEMPT [None]
  - WEIGHT INCREASED [None]
